FAERS Safety Report 5648363-3 (Version None)
Quarter: 2008Q1

REPORT INFORMATION
  Report Type: 
  Country: None (occurrence: None)
  Receive Date: 20080131
  Receipt Date: 20071005
  Transmission Date: 20080703
  Serious: No
  Sender: FDA-Public Use
  Company Number: 2006PV009235

PATIENT
  Age: 75 Year
  Sex: Male
  Weight: 99.8 kg

DRUGS (12)
  1. EXENATIDE(EXENATIDE) PEN,DISPOSABLE [Suspect]
     Indication: TYPE 2 DIABETES MELLITUS
     Dosage: 5 UG, 2/D, SUBCUTANEOUS ; SUBCUTANEOUS ; 5 UG, 2/D, SUBCUTANEOUS
     Route: 058
     Dates: start: 20051201
  2. EXENATIDE(EXENATIDE) PEN,DISPOSABLE [Suspect]
     Indication: TYPE 2 DIABETES MELLITUS
     Dosage: 5 UG, 2/D, SUBCUTANEOUS ; SUBCUTANEOUS ; 5 UG, 2/D, SUBCUTANEOUS
     Route: 058
     Dates: start: 20071005
  3. EXENATIDE(EXENATIDE) PEN,DISPOSABLE [Suspect]
  4. METFORMIN HCL [Concomitant]
  5. ACTOS [Concomitant]
  6. UNKNOWN DIABETES MEDICATION [Concomitant]
  7. ASPIRIN [Concomitant]
  8. THYROID TAB [Concomitant]
  9. CHOLESTEROL MEDICATION [Concomitant]
  10. PREDNISONE TAB [Concomitant]
  11. AMARYL [Concomitant]
  12. DRUG USED IN DIABETES [Concomitant]

REACTIONS (5)
  - BLOOD GLUCOSE INCREASED [None]
  - DECREASED APPETITE [None]
  - INJECTION SITE BRUISING [None]
  - INJECTION SITE REACTION [None]
  - WEIGHT DECREASED [None]
